APPROVED DRUG PRODUCT: METHYLPHENIDATE HYDROCHLORIDE
Active Ingredient: METHYLPHENIDATE HYDROCHLORIDE
Strength: 10MG
Dosage Form/Route: TABLET, EXTENDED RELEASE;ORAL
Application: A204772 | Product #001
Applicant: ALVOGEN INC
Approved: Feb 29, 2016 | RLD: No | RS: No | Type: DISCN